FAERS Safety Report 9664887 (Version 2)
Quarter: 2013Q4

REPORT INFORMATION
  Report Type: Spontaneous
  Country: JP (occurrence: JP)
  Receive Date: 20131101
  Receipt Date: 20131127
  Transmission Date: 20140711
  Serious: No
  Sender: FDA-Public Use
  Company Number: JP-GLAXOSMITHKLINE-B0928071A

PATIENT
  Age: 66 Year
  Sex: Female

DRUGS (15)
  1. VALTREX [Suspect]
     Indication: HERPES ZOSTER
     Dosage: 1000MG PER DAY
     Route: 048
     Dates: start: 20130929, end: 20131002
  2. SINGULAIR [Concomitant]
     Indication: ASTHMA
     Route: 048
  3. MEDICON [Concomitant]
     Indication: ASTHMA
     Route: 048
  4. ADOAIR [Concomitant]
     Indication: ASTHMA
     Route: 055
  5. ZYLORIC [Concomitant]
     Indication: HYPERURICAEMIA
     Dosage: 100MG PER DAY
     Route: 048
  6. ROCALTROL [Concomitant]
     Dosage: .5MCG PER DAY
     Route: 048
  7. FUROSEMIDE [Concomitant]
     Dosage: 80MG PER DAY
     Route: 048
  8. NATRIX [Concomitant]
     Dosage: 2MG PER DAY
     Route: 048
  9. SELECTOL [Concomitant]
     Dosage: 100MG TWICE PER DAY
     Route: 048
  10. DETANTOL R [Concomitant]
     Dosage: 6MG PER DAY
     Route: 048
  11. CALTAN [Concomitant]
     Dosage: 500MG THREE TIMES PER DAY
     Route: 048
  12. OLMETEC [Concomitant]
     Dosage: 20MG TWICE PER DAY
     Route: 048
  13. ATELEC [Concomitant]
     Dosage: 10MG TWICE PER DAY
     Route: 048
  14. NEXIUM [Concomitant]
     Dosage: 20MG PER DAY
     Route: 048
  15. RENAGEL [Concomitant]
     Dosage: 250MG THREE TIMES PER DAY
     Route: 048

REACTIONS (3)
  - Dizziness [Unknown]
  - Dysarthria [Unknown]
  - Overdose [Unknown]
